FAERS Safety Report 26069940 (Version 1)
Quarter: 2025Q4

REPORT INFORMATION
  Report Type: Spontaneous
  Country: US (occurrence: US)
  Receive Date: 20251120
  Receipt Date: 20251120
  Transmission Date: 20260118
  Serious: No
  Sender: CATALYST PHARMA
  Company Number: US-CATALYST PHARMACEUTICALS-US-CATA-25-01169

PATIENT
  Sex: Male
  Weight: 48.29 kg

DRUGS (8)
  1. AGAMREE [Suspect]
     Active Substance: VAMOROLONE
     Indication: Duchenne muscular dystrophy
     Dosage: 1 ML ONCE A DAY (TITRATING DOSE; SLOWLY INCREASING HIS DOSE WEEK BY WEEK)
     Route: 048
     Dates: start: 20250717, end: 202507
  2. AGAMREE [Suspect]
     Active Substance: VAMOROLONE
     Dosage: 3 ML ONCE A DAY
     Route: 048
     Dates: start: 20250731, end: 2025
  3. AGAMREE [Suspect]
     Active Substance: VAMOROLONE
     Dosage: 7.2 ML ONCE A DAY
     Route: 048
     Dates: start: 20250831
  4. ENTRESTO [Concomitant]
     Active Substance: SACUBITRIL\VALSARTAN
     Indication: Cardiovascular event prophylaxis
     Dosage: 97-103 MG TWICE A DAY
     Route: 065
  5. EPLERENONE [Concomitant]
     Active Substance: EPLERENONE
     Indication: Cardiovascular event prophylaxis
     Dosage: 25 MG ONCE A DAY
     Route: 065
  6. METOPROLOL TARTRATE [Concomitant]
     Active Substance: METOPROLOL TARTRATE
     Indication: Cardiovascular event prophylaxis
     Dosage: 25 MG ONCE A DAY
     Route: 065
  7. CALCIUM [Concomitant]
     Active Substance: CALCIUM
     Indication: Hypovitaminosis
     Dosage: 500 MG ONCE A DAY
     Route: 065
  8. VITAMIN D3 [Concomitant]
     Active Substance: CHOLECALCIFEROL
     Indication: Hypovitaminosis
     Dosage: 2000 UNITS ONCE A DAY
     Route: 065

REACTIONS (4)
  - Pruritus [Not Recovered/Not Resolved]
  - Sleep disorder [Not Recovered/Not Resolved]
  - Incorrect dose administered by device [Unknown]
  - Syringe issue [Unknown]

NARRATIVE: CASE EVENT DATE: 20250101
